FAERS Safety Report 5716234-X (Version None)
Quarter: 2008Q2

REPORT INFORMATION
  Report Type: 
  Country: None (occurrence: None)
  Receive Date: 20080424
  Receipt Date: 20080409
  Transmission Date: 20081010
  Serious: Yes (Congenital Anomaly)
  Sender: FDA-Public Use
  Company Number: A0685066A

PATIENT
  Sex: Male

DRUGS (2)
  1. PAXIL [Suspect]
     Indication: DEPRESSION
     Dates: start: 19990101, end: 19990101
  2. VITAMIN TAB [Concomitant]

REACTIONS (8)
  - AORTIC VALVE INCOMPETENCE [None]
  - CONGENITAL AORTIC STENOSIS [None]
  - CONGENITAL MITRAL VALVE STENOSIS [None]
  - DRUG EXPOSURE DURING PREGNANCY [None]
  - HYPOPLASTIC LEFT HEART SYNDROME [None]
  - PLEURAL EFFUSION [None]
  - RIGHT VENTRICULAR HYPERTROPHY [None]
  - TRICUSPID VALVE INCOMPETENCE [None]
